FAERS Safety Report 9496716 (Version 1)
Quarter: 2013Q3

REPORT INFORMATION
  Report Type: Spontaneous
  Country: FR (occurrence: FR)
  Receive Date: 20130904
  Receipt Date: 20130904
  Transmission Date: 20140515
  Serious: Yes (Hospitalization, Disabling)
  Sender: FDA-Public Use
  Company Number: FR-SANOFI-AVENTIS-2013SA086530

PATIENT
  Age: 55 Year
  Sex: Male

DRUGS (8)
  1. CLOPIDOGREL [Suspect]
     Indication: PRODUCT USED FOR UNKNOWN INDICATION
     Route: 048
     Dates: start: 20130306, end: 20130314
  2. PROPANOLOL [Concomitant]
     Route: 048
  3. CONTRAMAL [Concomitant]
     Route: 048
  4. CRESTOR [Concomitant]
  5. ATARAX [Concomitant]
     Route: 048
  6. SERESTA [Concomitant]
  7. CETORNAN [Concomitant]
     Route: 048
  8. PLAVIX [Concomitant]
     Dates: end: 20130305

REACTIONS (3)
  - Aphasia [Not Recovered/Not Resolved]
  - Hemiplegia [Not Recovered/Not Resolved]
  - Cerebrovascular accident [Not Recovered/Not Resolved]
